FAERS Safety Report 15372590 (Version 2)
Quarter: 2018Q4

REPORT INFORMATION
  Report Type: Report from Study
  Country: CL (occurrence: CL)
  Receive Date: 20180911
  Receipt Date: 20181120
  Transmission Date: 20190204
  Serious: Yes (Hospitalization, Other)
  Sender: FDA-Public Use
  Company Number: CL-BRISTOL-MYERS SQUIBB COMPANY-BMS-2018-048519

PATIENT
  Age: 52 Year
  Sex: Female

DRUGS (2)
  1. ABATACEPT [Suspect]
     Active Substance: ABATACEPT
     Indication: PRODUCT USED FOR UNKNOWN INDICATION
     Dosage: 125 MG, QWK
     Route: 058
     Dates: end: 2018
  2. ABATACEPT [Suspect]
     Active Substance: ABATACEPT
     Indication: RHEUMATOID ARTHRITIS
     Dosage: 125 MG, QWK
     Route: 058
     Dates: start: 20170412, end: 201804

REACTIONS (12)
  - Pain [Recovered/Resolved]
  - Spinal pain [Recovering/Resolving]
  - Fatigue [Recovered/Resolved]
  - Hypertension [Recovering/Resolving]
  - Apnoea [Recovered/Resolved]
  - Hypothyroidism [Unknown]
  - Musculoskeletal pain [Recovering/Resolving]
  - Drug ineffective [Recovered/Resolved]
  - Spinal disorder [Unknown]
  - Menopause [Unknown]
  - Gait inability [Unknown]
  - Memory impairment [Recovered/Resolved]

NARRATIVE: CASE EVENT DATE: 201804
